FAERS Safety Report 8923435 (Version 1)
Quarter: 2012Q4

REPORT INFORMATION
  Report Type: 
  Country: IT (occurrence: IT)
  Receive Date: 20121123
  Receipt Date: 20121123
  Transmission Date: 20130627
  Serious: Yes (Hospitalization)
  Sender: FDA-Public Use
  Company Number: IT-JNJFOC-20121111504

PATIENT
  Age: 73 Year
  Sex: Female

DRUGS (1)
  1. REMINYL [Suspect]
     Indication: COGNITIVE DISORDER
     Route: 048
     Dates: start: 20120802, end: 20120803

REACTIONS (3)
  - Dyspnoea [Recovering/Resolving]
  - Vertigo [Recovering/Resolving]
  - Vomiting [Recovering/Resolving]
